APPROVED DRUG PRODUCT: KETOROLAC TROMETHAMINE
Active Ingredient: KETOROLAC TROMETHAMINE
Strength: 10MG
Dosage Form/Route: TABLET;ORAL
Application: A216407 | Product #001
Applicant: ATNAHS PHARMA US LTD
Approved: Oct 21, 2022 | RLD: No | RS: No | Type: DISCN